FAERS Safety Report 4964638-5 (Version None)
Quarter: 2006Q2

REPORT INFORMATION
  Report Type: 
  Country: None (occurrence: None)
  Receive Date: 20060406
  Receipt Date: 20051019
  Transmission Date: 20061013
  Serious: Yes (Hospitalization)
  Sender: FDA-Public Use
  Company Number: US-MERCK-0510USA08305

PATIENT
  Age: 54 Year
  Sex: Male
  Weight: 109 kg

DRUGS (2)
  1. VIOXX [Suspect]
     Indication: ARTHRITIS
     Route: 048
     Dates: start: 20040106, end: 20040129
  2. VIOXX [Suspect]
     Indication: CARPAL TUNNEL SYNDROME
     Route: 048
     Dates: start: 20040106, end: 20040129

REACTIONS (3)
  - MYOCARDIAL INFARCTION [None]
  - SLEEP APNOEA SYNDROME [None]
  - TRANSIENT ISCHAEMIC ATTACK [None]
